FAERS Safety Report 21368471 (Version 4)
Quarter: 2023Q1

REPORT INFORMATION
  Report Type: Report from Study
  Country: US (occurrence: US)
  Receive Date: 20220923
  Receipt Date: 20230208
  Transmission Date: 20230417
  Serious: Yes (Other)
  Sender: FDA-Public Use
  Company Number: US-ABBVIE-4128567

PATIENT
  Age: 28 Year
  Sex: Female

DRUGS (7)
  1. HUMIRA [Suspect]
     Active Substance: ADALIMUMAB
     Indication: Crohn^s disease
     Dosage: CITRATE FREE, ONSET DATE OF ABDOMINAL OBSTRUCTION:2022
     Route: 058
     Dates: start: 20220317
  2. OMEPRAZOLE [Concomitant]
     Active Substance: OMEPRAZOLE
     Indication: Gastrooesophageal reflux disease
     Dosage: DAILY
     Route: 048
  3. MODERNA COVID-19 VACCINE [Concomitant]
     Active Substance: ELASOMERAN
     Indication: COVID-19 immunisation
     Dosage: ONCE, 1ST DOSE
     Route: 030
     Dates: start: 20201230, end: 20201230
  4. MODERNA COVID-19 VACCINE [Concomitant]
     Active Substance: ELASOMERAN
     Indication: COVID-19 immunisation
     Dosage: ONCE, 2ND DOSE
     Route: 030
     Dates: start: 20210126, end: 20210126
  5. MODERNA COVID-19 VACCINE [Concomitant]
     Active Substance: ELASOMERAN
     Indication: COVID-19 immunisation
     Dosage: ONCE, 3RD BOOSTER DOSE
     Route: 030
     Dates: start: 20211121, end: 20211121
  6. probiotine [Concomitant]
     Indication: Supplementation therapy
     Route: 048
  7. AZATHIOPRINE [Concomitant]
     Active Substance: AZATHIOPRINE
     Indication: Crohn^s disease
     Dosage: DAILY
     Route: 048
     Dates: start: 202112

REACTIONS (2)
  - Gastrointestinal obstruction [Unknown]
  - Injection site pain [Unknown]

NARRATIVE: CASE EVENT DATE: 20220508
